FAERS Safety Report 8106614-X (Version None)
Quarter: 2012Q1

REPORT INFORMATION
  Report Type: 
  Country: None (occurrence: None)
  Receive Date: 20120202
  Receipt Date: 20120124
  Transmission Date: 20120608
  Serious: Yes (Other)
  Sender: FDA-Public Use
  Company Number: US-ELI_LILLY_AND_COMPANY-US201201008258

PATIENT
  Sex: Female

DRUGS (9)
  1. METOPROLOL [Concomitant]
  2. CYMBALTA [Suspect]
     Dosage: 30 MG, QD
  3. LISINOPRIL                              /USA/ [Concomitant]
  4. CYMBALTA [Suspect]
     Dosage: 60 MG, QD
  5. LORATADINE [Concomitant]
  6. CYMBALTA [Suspect]
     Indication: DEPRESSION
     Dosage: UNK, UNKNOWN
     Dates: start: 20060101
  7. METFORMIN HCL [Concomitant]
  8. LODINE [Concomitant]
  9. LEVOTHYROXINE SODIUM [Concomitant]

REACTIONS (3)
  - VENTRICULAR TACHYCARDIA [None]
  - MUSCULOSKELETAL CHEST PAIN [None]
  - ANORGASMIA [None]
